FAERS Safety Report 18865243 (Version 1)
Quarter: 2021Q1

REPORT INFORMATION
  Report Type: Spontaneous
  Country: US (occurrence: US)
  Receive Date: 20210209
  Receipt Date: 20210209
  Transmission Date: 20210420
  Serious: Yes (Hospitalization)
  Sender: FDA-Public Use
  Company Number: None

PATIENT
  Age: 20 Year
  Sex: Female
  Weight: 68 kg

DRUGS (6)
  1. DEXAMETHASONE. [Concomitant]
     Active Substance: DEXAMETHASONE
     Dates: end: 20210205
  2. ONCASPAR [Concomitant]
     Active Substance: PEGASPARGASE
     Dates: end: 20210121
  3. CYTARABINE (63878) [Suspect]
     Active Substance: CYTARABINE
     Dates: end: 20210108
  4. VINCRISTINE SULFATE. [Concomitant]
     Active Substance: VINCRISTINE SULFATE
     Dates: end: 20210201
  5. METHOTREXATE. [Concomitant]
     Active Substance: METHOTREXATE
     Dates: end: 20210126
  6. DAUNORUBICIN [Concomitant]
     Active Substance: DAUNORUBICIN
     Dates: end: 20210201

REACTIONS (10)
  - Abdominal discomfort [None]
  - Paraneoplastic syndrome [None]
  - Extensor plantar response [None]
  - Musculoskeletal stiffness [None]
  - Pachymeningitis [None]
  - Hoffmann^s sign [None]
  - Autoimmune disorder [None]
  - Hyperreflexia [None]
  - Subdural effusion [None]
  - Dyspnoea [None]

NARRATIVE: CASE EVENT DATE: 20210205
